FAERS Safety Report 8180895-9 (Version None)
Quarter: 2012Q1

REPORT INFORMATION
  Report Type: 
  Country: None (occurrence: None)
  Receive Date: 20120302
  Receipt Date: 20120217
  Transmission Date: 20120608
  Serious: Yes (Hospitalization)
  Sender: FDA-Public Use
  Company Number: CH-WATSON-2012-03413

PATIENT
  Age: 66 Year
  Sex: Male

DRUGS (3)
  1. TRAMADOL HCL [Suspect]
     Dosage: 150 MG, DAILY
     Route: 065
     Dates: start: 19920101, end: 19980101
  2. TRAMADOL HCL [Suspect]
     Indication: BACK PAIN
     Dosage: X SEVERAL YEARS ^ACCORDING TO MEDICAL PRESCRIPTION^
     Route: 065
     Dates: end: 20050201
  3. TRAMADOL HCL [Suspect]
     Dosage: DOCUMENTED ONLY ONCE IN DECEMBER 2004
     Route: 065
     Dates: start: 20000101, end: 20041201

REACTIONS (2)
  - OVERDOSE [None]
  - DELIRIUM [None]
